FAERS Safety Report 20414999 (Version 1)
Quarter: 2022Q1

REPORT INFORMATION
  Report Type: Other
  Country: FR (occurrence: None)
  Receive Date: 20220202
  Receipt Date: 20220202
  Transmission Date: 20220423
  Serious: Yes (Other)
  Sender: FDA-Public Use
  Company Number: FR-ROCHE-2963479

PATIENT

DRUGS (2)
  1. VISMODEGIB [Suspect]
     Active Substance: VISMODEGIB
     Indication: Medulloblastoma
     Route: 065
  2. SONIDEGIB [Suspect]
     Active Substance: SONIDEGIB
     Indication: Medulloblastoma
     Route: 065

REACTIONS (15)
  - Epiphyses premature fusion [Unknown]
  - Growth retardation [Unknown]
  - Myalgia [Unknown]
  - Osteosclerosis [Unknown]
  - Drug resistance [Unknown]
  - Alopecia [Unknown]
  - Dry skin [Unknown]
  - Dry mouth [Unknown]
  - Blood creatine phosphokinase increased [Unknown]
  - Muscle spasms [Unknown]
  - Abdominal pain [Unknown]
  - Vomiting [Unknown]
  - Asthenia [Unknown]
  - Amnesia [Unknown]
  - Decreased appetite [Unknown]
